FAERS Safety Report 6928859-4 (Version None)
Quarter: 2010Q3

REPORT INFORMATION
  Report Type: 
  Country: None (occurrence: None)
  Receive Date: 20100817
  Receipt Date: 20100809
  Transmission Date: 20110219
  Serious: Yes (Life-Threatening)
  Sender: FDA-Public Use
  Company Number: GB-BRISTOL-MYERS SQUIBB COMPANY-15217920

PATIENT
  Age: 60 Year
  Sex: Female

DRUGS (2)
  1. CETUXIMAB [Suspect]
     Indication: BREAST CANCER
     Dosage: MOST RECENT INFUSION ON 11JUL2008.TOTAL INFUSIONS:2.STRENGTH 5MG/ML
     Route: 042
     Dates: start: 20080610, end: 20080711
  2. CISPLATIN [Suspect]
     Indication: BREAST CANCER
     Dosage: MOST RECENT INFUSION ON 104JUL2008.TOTAL INFUSIONS:2
     Route: 042
     Dates: start: 20080610, end: 20080704

REACTIONS (1)
  - PULMONARY EMBOLISM [None]
